FAERS Safety Report 9691287 (Version 3)
Quarter: 2014Q2

REPORT INFORMATION
  Report Type: Spontaneous
  Country: US (occurrence: US)
  Receive Date: 20131115
  Receipt Date: 20140423
  Transmission Date: 20141212
  Serious: Yes (Hospitalization)
  Sender: FDA-Public Use
  Company Number: US-BAYER-2013-138151

PATIENT
  Age: 28 Year
  Sex: Female

DRUGS (19)
  1. YAZ [Suspect]
  2. YASMIN [Suspect]
     Dosage: UNK
  3. LISINOPRIL/HYDROCHLOROTHIAZIDE [Concomitant]
  4. VYTORIN [Concomitant]
     Dosage: 10-80MG
  5. PLAVIX [Concomitant]
     Dosage: 75 MG, UNK
     Route: 048
  6. NITROFURAN [Concomitant]
     Dosage: 100 MG, UNK
  7. ATENOLOL [Concomitant]
     Dosage: 50 MG, UNK
     Route: 048
  8. BENICAR [Concomitant]
     Dosage: 20 MG, UNK
     Route: 048
  9. EFFEXOR XR [Concomitant]
     Dosage: 37.5 MG, UNK
     Route: 048
  10. AZITHROMYCIN [Concomitant]
     Dosage: 250 MG, UNK
     Route: 048
  11. PROMETHEGAN [Concomitant]
     Dosage: 25 MG, UNK
  12. AMOXICILLIN [Concomitant]
     Dosage: 500 MG, TID
  13. PHENERGAN [Concomitant]
  14. Z-PAK [Concomitant]
  15. LOMOTIL [ATROPINE SULFATE,DIPHENOXYLATE HYDROCHLORIDE] [Concomitant]
  16. LOMOTIL [ATROPINE SULFATE,DIPHENOXYLATE HYDROCHLORIDE] [Concomitant]
  17. CEFUROXIME [Concomitant]
  18. CEFUROXIME [Concomitant]
  19. ROCEPHIN [Concomitant]

REACTIONS (2)
  - Transverse sinus thrombosis [None]
  - Superior sagittal sinus thrombosis [None]
